FAERS Safety Report 8125323-4 (Version None)
Quarter: 2012Q1

REPORT INFORMATION
  Report Type: 
  Country: None (occurrence: None)
  Receive Date: 20120209
  Receipt Date: 20120208
  Transmission Date: 20120608
  Serious: Yes (Congenital Anomaly, Other)
  Sender: FDA-Public Use
  Company Number: AU-VIIV HEALTHCARE LIMITED-A0947825A

PATIENT

DRUGS (2)
  1. COMBIVIR [Suspect]
     Indication: ANTIRETROVIRAL THERAPY
     Route: 064
  2. ISENTRESS [Suspect]
     Indication: ANTIRETROVIRAL THERAPY
     Route: 064

REACTIONS (2)
  - PLAGIOCEPHALY [None]
  - FOETAL EXPOSURE DURING PREGNANCY [None]
